FAERS Safety Report 25667034 (Version 1)
Quarter: 2025Q3

REPORT INFORMATION
  Report Type: Spontaneous
  Country: US (occurrence: None)
  Receive Date: 20250809
  Receipt Date: 20250809
  Transmission Date: 20251021
  Serious: Yes (Hospitalization)
  Sender: FDA-CTU
  Company Number: None

PATIENT
  Sex: Male

DRUGS (1)
  1. VYNDAMAX [Suspect]
     Active Substance: TAFAMIDIS
     Indication: Left ventricular failure
     Dosage: FREQUENCY : DAILY;?
     Route: 048
     Dates: start: 20240813

REACTIONS (4)
  - Bradycardia [None]
  - Product use complaint [None]
  - Nausea [None]
  - Refusal of treatment by patient [None]
